FAERS Safety Report 15932612 (Version 2)
Quarter: 2019Q1

REPORT INFORMATION
  Report Type: Spontaneous
  Country: US (occurrence: US)
  Receive Date: 20190207
  Receipt Date: 20190212
  Transmission Date: 20190417
  Serious: Yes (Hospitalization, Other)
  Sender: FDA-Public Use
  Company Number: US-PFIZER INC-2018428589

PATIENT
  Age: 72 Year
  Sex: Male
  Weight: 95.25 kg

DRUGS (2)
  1. CELEBREX [Suspect]
     Active Substance: CELECOXIB
     Indication: ARTHRITIS
     Dosage: 200 MG, 2X/DAY
     Route: 048
     Dates: end: 20190125
  2. BABY ASPIRIN [Concomitant]
     Active Substance: ASPIRIN
     Indication: PROPHYLAXIS
     Dosage: 81 MG, 1X/DAY
     Route: 048

REACTIONS (4)
  - Back disorder [Unknown]
  - Scoliosis [Unknown]
  - Infection [Unknown]
  - Thrombosis [Unknown]

NARRATIVE: CASE EVENT DATE: 2015
